FAERS Safety Report 5253835-X (Version None)
Quarter: 2007Q1

REPORT INFORMATION
  Report Type: 
  Country: None (occurrence: None)
  Receive Date: 20070227
  Receipt Date: 20070212
  Transmission Date: 20070707
  Serious: No
  Sender: FDA-Public Use
  Company Number: JPI-P-000626

PATIENT
  Sex: Female
  Weight: 80.2867 kg

DRUGS (1)
  1. XYREM [Suspect]
     Indication: HYPERSOMNIA
     Dosage: 7.5 GM (7.5 GM, 1 D), ORAL
     Route: 048

REACTIONS (2)
  - SLEEP APNOEA SYNDROME [None]
  - SNORING [None]
